FAERS Safety Report 17465256 (Version 1)
Quarter: 2020Q1

REPORT INFORMATION
  Report Type: Spontaneous
  Country: US (occurrence: US)
  Receive Date: 20200227
  Receipt Date: 20200227
  Transmission Date: 20200409
  Serious: Yes (Other)
  Sender: FDA-Public Use
  Company Number: US-009507513-2002USA007270

PATIENT
  Age: 34 Year
  Sex: Female
  Weight: 178.23 kg

DRUGS (1)
  1. IMPLANON [Suspect]
     Active Substance: ETONOGESTREL
     Dosage: STRENGTH: 68(UNIT NOT REPORTED), 1 ROD EVERY 3 YEARS
     Route: 059
     Dates: start: 201502

REACTIONS (5)
  - Incorrect product administration duration [Unknown]
  - Alcohol poisoning [Unknown]
  - Complication of device removal [Not Recovered/Not Resolved]
  - Device breakage [Unknown]
  - Wrong technique in product usage process [Unknown]

NARRATIVE: CASE EVENT DATE: 201802
